FAERS Safety Report 15434803 (Version 1)
Quarter: 2018Q3

REPORT INFORMATION
  Report Type: Spontaneous
  Country: US (occurrence: US)
  Receive Date: 20180922
  Receipt Date: 20180922
  Transmission Date: 20181010
  Serious: Yes (Other)
  Sender: FDA-Public Use
  Company Number: None

PATIENT
  Age: 49 Year
  Sex: Female
  Weight: 100.35 kg

DRUGS (1)
  1. HYDROCODONE/ACETAMINOPHEN 10?325 [Suspect]
     Active Substance: ACETAMINOPHEN\HYDROCODONE
     Indication: PAIN
     Dosage: ?          QUANTITY:120 TABLET(S);?
     Route: 048
     Dates: start: 20180730, end: 20180828

REACTIONS (4)
  - Headache [None]
  - Product physical issue [None]
  - Abdominal pain upper [None]
  - Drug ineffective [None]

NARRATIVE: CASE EVENT DATE: 20180730
